FAERS Safety Report 23807743 (Version 1)
Quarter: 2024Q2

REPORT INFORMATION
  Report Type: Spontaneous
  Country: US (occurrence: US)
  Receive Date: 20240502
  Receipt Date: 20240502
  Transmission Date: 20240715
  Serious: Yes (Hospitalization, Other)
  Sender: FDA-Public Use
  Company Number: US-AUROBINDO-AUR-APL-2024-020289

PATIENT
  Age: 17 Month
  Sex: Male

DRUGS (4)
  1. PREDNISOLONE [Suspect]
     Active Substance: PREDNISOLONE
     Indication: Cough
     Dosage: 2 MG/KG/DAY
     Route: 048
  2. PREDNISOLONE [Suspect]
     Active Substance: PREDNISOLONE
     Indication: Wheezing
     Dosage: TAPERED (1 MG/KG X 7 DAYS, 0.75 MG/KG X 5 DAYS, 0.5 MG/KG X 5 DAYS, 0.25 MG/KG X 5 DAYS)
     Route: 048
  3. PREDNISOLONE [Suspect]
     Active Substance: PREDNISOLONE
     Indication: Nasal congestion
  4. ALBUTEROL [Concomitant]
     Active Substance: ALBUTEROL
     Indication: Lung infiltration
     Dosage: UNK
     Route: 065

REACTIONS (3)
  - Disease progression [Unknown]
  - Respiratory failure [Unknown]
  - Drug ineffective [Unknown]
